FAERS Safety Report 9995631 (Version 1)
Quarter: 2014Q1

REPORT INFORMATION
  Report Type: Spontaneous
  Country: CH (occurrence: CH)
  Receive Date: 20140311
  Receipt Date: 20140311
  Transmission Date: 20141002
  Serious: Yes (Other)
  Sender: FDA-Public Use
  Company Number: CH-BAYER-2014-032810

PATIENT
  Sex: 0
  Weight: 1.67 kg

DRUGS (7)
  1. NIFEDIPINE [Suspect]
     Route: 064
  2. INDOMETHACIN [Concomitant]
     Indication: TOCOLYSIS
     Dosage: UNK
     Route: 064
  3. ATOSIBAN [Concomitant]
     Dosage: ONE DOSE ONCE
     Route: 064
  4. PROGESTERONE [Concomitant]
  5. AMOXICILLIN [Concomitant]
     Dosage: UNK
     Route: 064
  6. AZITHROMYCIN [Concomitant]
     Indication: ANTIBIOTIC PROPHYLAXIS
     Dosage: UNK UNK, ONCE
     Route: 064
  7. ENOXAPARIN [Concomitant]
     Dosage: UNK, UNK
     Route: 064

REACTIONS (2)
  - Low birth weight baby [None]
  - Maternal exposure during pregnancy [None]
